FAERS Safety Report 14170639 (Version 1)
Quarter: 2017Q4

REPORT INFORMATION
  Report Type: Spontaneous
  Country: US (occurrence: US)
  Receive Date: 20171108
  Receipt Date: 20171108
  Transmission Date: 20180321
  Serious: No
  Sender: FDA-Public Use
  Company Number: US-MORTON GROVE PHARMACEUTICALS, INC.-2033549

PATIENT
  Age: 72 Year
  Sex: Female
  Weight: 84.09 kg

DRUGS (8)
  1. MAGNESIUM OTC [Concomitant]
  2. AMLODIPINE [Concomitant]
     Active Substance: AMLODIPINE BESYLATE
  3. LOSARTAN. [Concomitant]
     Active Substance: LOSARTAN
  4. POTASSIUM [Concomitant]
     Active Substance: POTASSIUM
  5. ELIQUIS [Concomitant]
     Active Substance: APIXABAN
  6. NORCO [Concomitant]
     Active Substance: ACETAMINOPHEN\HYDROCODONE BITARTRATE
  7. GENERLAC [Suspect]
     Active Substance: LACTULOSE
     Indication: IRRITABLE BOWEL SYNDROME
     Route: 048
  8. LACTULOSE. [Concomitant]
     Active Substance: LACTULOSE

REACTIONS (1)
  - Drug ineffective [Recovered/Resolved]
